FAERS Safety Report 21967562 (Version 4)
Quarter: 2024Q1

REPORT INFORMATION
  Report Type: Spontaneous
  Country: US (occurrence: US)
  Receive Date: 20230208
  Receipt Date: 20240125
  Transmission Date: 20240409
  Serious: Yes (Death, Other)
  Sender: FDA-Public Use
  Company Number: US-PFIZER INC-PV202300023900

PATIENT
  Age: 89 Year
  Sex: Male

DRUGS (6)
  1. VYNDAMAX [Suspect]
     Active Substance: TAFAMIDIS
     Indication: Amyloidosis
     Dosage: 61 MG
     Dates: start: 2019
  2. FERROUS SULFATE [Concomitant]
     Active Substance: FERROUS SULFATE
     Dosage: MONDAY, WEDNESDAY, FRIDAY
     Dates: end: 202301
  3. SIMVASTATIN [Concomitant]
     Active Substance: SIMVASTATIN
     Dosage: 40 MG
     Dates: end: 202301
  4. SPIRONOLACTONE [Concomitant]
     Active Substance: SPIRONOLACTONE
     Dosage: 25 MG
     Dates: end: 202301
  5. TORSEMIDE [Concomitant]
     Active Substance: TORSEMIDE
     Dosage: 20 MG
     Dates: end: 202301
  6. WARFARIN [Concomitant]
     Active Substance: WARFARIN
     Dosage: 2 MG
     Dates: end: 202301

REACTIONS (2)
  - Death [Fatal]
  - Sepsis [Fatal]

NARRATIVE: CASE EVENT DATE: 20230125
